FAERS Safety Report 7073358-5 (Version None)
Quarter: 2010Q4

REPORT INFORMATION
  Report Type: 
  Country: None (occurrence: None)
  Receive Date: 20101029
  Receipt Date: 20100518
  Transmission Date: 20110411
  Serious: No
  Sender: FDA-Public Use
  Company Number: A0863623A

PATIENT

DRUGS (2)
  1. ADVAIR DISKUS 100/50 [Suspect]
     Indication: ASTHMA
     Route: 055
  2. MULTIPLE MEDICATIONS [Concomitant]

REACTIONS (3)
  - GINGIVAL PAIN [None]
  - LOOSE TOOTH [None]
  - TOOTHACHE [None]
